FAERS Safety Report 14764056 (Version 3)
Quarter: 2020Q1

REPORT INFORMATION
  Report Type: Report from Study
  Country: CA (occurrence: CA)
  Receive Date: 20180416
  Receipt Date: 20200309
  Transmission Date: 20200409
  Serious: Yes (Other)
  Sender: FDA-Public Use
  Company Number: CA-ROCHE-1988458

PATIENT
  Age: 46 Year
  Sex: Female

DRUGS (7)
  1. CIPRALEX [Concomitant]
     Active Substance: ESCITALOPRAM OXALATE
     Route: 065
  2. ACTEMRA [Suspect]
     Active Substance: TOCILIZUMAB
     Route: 058
     Dates: start: 20170731, end: 20170922
  3. RITUXAN [Suspect]
     Active Substance: RITUXIMAB
     Indication: RHEUMATOID ARTHRITIS
     Dosage: FREQUENCY: DAY 1 AND DAY 15
     Route: 042
     Dates: start: 20090909, end: 20170216
  4. BETADERM [BETAMETHASONE VALERATE] [Concomitant]
     Route: 065
  5. ACTEMRA [Suspect]
     Active Substance: TOCILIZUMAB
     Indication: RHEUMATOID ARTHRITIS
     Route: 042
     Dates: start: 20171005, end: 20200212
  6. METHOTREXATE. [Suspect]
     Active Substance: METHOTREXATE
     Indication: PRODUCT USED FOR UNKNOWN INDICATION
     Route: 065
     Dates: end: 20060209
  7. ACTEMRA [Suspect]
     Active Substance: TOCILIZUMAB
     Indication: RHEUMATOID ARTHRITIS
     Dosage: ON HOLD
     Route: 058
     Dates: start: 20090910

REACTIONS (19)
  - Blister [Unknown]
  - Increased tendency to bruise [Not Recovered/Not Resolved]
  - Bone swelling [Unknown]
  - Erythema [Unknown]
  - Musculoskeletal stiffness [Unknown]
  - Synovitis [Unknown]
  - Arthralgia [Not Recovered/Not Resolved]
  - Joint swelling [Unknown]
  - Headache [Unknown]
  - Injection site haematoma [Unknown]
  - Drug ineffective [Unknown]
  - Tendon disorder [Unknown]
  - Injection site vesicles [Unknown]
  - Rash erythematous [Unknown]
  - Pain in extremity [Unknown]
  - Musculoskeletal stiffness [Not Recovered/Not Resolved]
  - Bone pain [Unknown]
  - Injection site swelling [Unknown]
  - Arthralgia [Unknown]

NARRATIVE: CASE EVENT DATE: 2017
